FAERS Safety Report 25044964 (Version 2)
Quarter: 2025Q1

REPORT INFORMATION
  Report Type: Spontaneous
  Country: DK (occurrence: DK)
  Receive Date: 20250306
  Receipt Date: 20250328
  Transmission Date: 20250408
  Serious: Yes (Disabling, Other)
  Sender: SANOFI AVENTIS
  Company Number: None

PATIENT
  Age: 60 Year
  Sex: Female

DRUGS (3)
  1. ARAVA [Suspect]
     Active Substance: LEFLUNOMIDE
     Indication: Rheumatoid arthritis
     Dosage: THE DOSAGE WAS DECREASED TO FROM AN UNKNOWN DOSE TO 10 MG IN DEC2015.
     Route: 048
     Dates: start: 20150917, end: 201605
  2. ARAVA [Suspect]
     Active Substance: LEFLUNOMIDE
     Dosage: 10 MG, QOD
     Route: 048
     Dates: start: 20160612, end: 2017
  3. INFLIXIMAB [Suspect]
     Active Substance: INFLIXIMAB
     Indication: Rheumatoid arthritis
     Dosage: 700 MG, Q8W,START: 400 MG WEEKS 0,2,4,12,+8. LATER CHANGED TO 700 MG EVERY 8 WEEKS
     Route: 042
     Dates: start: 20160512, end: 20161223

REACTIONS (18)
  - Muscle spasms [Unknown]
  - Peripheral motor neuropathy [Unknown]
  - Pain in extremity [Unknown]
  - Paraesthesia [Not Recovered/Not Resolved]
  - Dysaesthesia [Not Recovered/Not Resolved]
  - Muscular weakness [Unknown]
  - Peripheral sensory neuropathy [Unknown]
  - Hypoaesthesia [Recovered/Resolved]
  - Back pain [Recovered/Resolved]
  - Myalgia [Not Recovered/Not Resolved]
  - Joint swelling [Unknown]
  - Tenderness [Unknown]
  - Peripheral swelling [Unknown]
  - Feeling hot [Unknown]
  - Erythema [Not Recovered/Not Resolved]
  - Pruritus [Unknown]
  - Malaise [Not Recovered/Not Resolved]
  - Rash [Not Recovered/Not Resolved]

NARRATIVE: CASE EVENT DATE: 20161027
